FAERS Safety Report 6569684-6 (Version None)
Quarter: 2010Q1

REPORT INFORMATION
  Report Type: 
  Country: None (occurrence: None)
  Receive Date: 20100125
  Receipt Date: 20090903
  Transmission Date: 20100710
  Serious: Yes (Hospitalization)
  Sender: FDA-Public Use
  Company Number: 2008BI022928

PATIENT
  Age: 49 Year
  Sex: Male

DRUGS (9)
  1. TYSABRI [Suspect]
     Indication: MULTIPLE SCLEROSIS
     Dosage: 300 MG;QM;IV
     Route: 042
     Dates: start: 20070723, end: 20090518
  2. BACLOFEN [Concomitant]
  3. MELOXICAM [Concomitant]
  4. PAROXETINE HCL [Concomitant]
  5. RISPERIDONE [Concomitant]
  6. SIMVASTATIN [Concomitant]
  7. TRAMADOL HCL [Concomitant]
  8. ZANAFLEX [Concomitant]
  9. PREV MEDS [Concomitant]

REACTIONS (4)
  - ASTHENIA [None]
  - FATIGUE [None]
  - PYREXIA [None]
  - URINARY TRACT INFECTION [None]
